FAERS Safety Report 10448965 (Version 1)
Quarter: 2014Q3

REPORT INFORMATION
  Report Type: Report from Study
  Country: TR (occurrence: TR)
  Receive Date: 20140912
  Receipt Date: 20140912
  Transmission Date: 20150326
  Serious: Yes (Other)
  Sender: FDA-Public Use
  Company Number: TR-BRISTOL-MYERS SQUIBB COMPANY-21368410

PATIENT
  Age: 67 Year
  Sex: Female

DRUGS (3)
  1. METFORMIN [Concomitant]
     Active Substance: METFORMIN HYDROCHLORIDE
  2. CIBADREX [Concomitant]
     Active Substance: BENAZEPRIL HYDROCHLORIDE
  3. BYETTA [Suspect]
     Active Substance: EXENATIDE
     Dosage: ONGOING
     Route: 058
     Dates: start: 20140403

REACTIONS (1)
  - Groin pain [Not Recovered/Not Resolved]

NARRATIVE: CASE EVENT DATE: 20140901
